FAERS Safety Report 25964026 (Version 1)
Quarter: 2025Q4

REPORT INFORMATION
  Report Type: Report from Study
  Country: US (occurrence: US)
  Receive Date: 20251027
  Receipt Date: 20251027
  Transmission Date: 20260117
  Serious: Yes (Hospitalization)
  Sender: IPSEN BIOPHARMACEUTICALS, INC.
  Company Number: US-IPSEN Group, Research and Development-2020-13156

PATIENT
  Age: 58 Year
  Sex: Male
  Weight: 101 kg

DRUGS (16)
  1. ONIVYDE [Suspect]
     Active Substance: IRINOTECAN HYDROCHLORIDE
     Indication: Adenocarcinoma of appendix
  2. FLUOROURACIL [Suspect]
     Active Substance: FLUOROURACIL
     Indication: Adenocarcinoma of appendix
  3. RUCAPARIB [Suspect]
     Active Substance: RUCAPARIB
     Indication: Adenocarcinoma of appendix
     Dates: start: 20200713
  4. OXYTOCIN [Concomitant]
     Active Substance: OXYTOCIN
     Indication: Pain
     Dosage: 10 MG CR
     Dates: start: 202006
  5. OXYCODONE [Concomitant]
     Active Substance: OXYCODONE
     Indication: Pain
     Dates: start: 202006
  6. COMPAZINE [Concomitant]
     Active Substance: PROCHLORPERAZINE MALEATE
     Indication: Nausea
     Dates: start: 202003
  7. ZOFRAN [Concomitant]
     Active Substance: ONDANSETRON HYDROCHLORIDE
     Indication: Nausea
     Dates: start: 201903
  8. METOCLOPRAMIDE [Concomitant]
     Active Substance: METOCLOPRAMIDE
     Indication: Nausea
     Dates: start: 202007
  9. SENNA [Concomitant]
     Active Substance: SENNOSIDES
     Indication: Constipation
     Dates: start: 202007
  10. DICLOFENAC TOPICAL GEL [Concomitant]
     Indication: Arthralgia
     Route: 061
     Dates: start: 202006
  11. LOVENOX [Concomitant]
     Active Substance: ENOXAPARIN SODIUM
     Indication: Thrombosis
     Dosage: 120 MG/0.8 ML, SHOT
     Dates: start: 202006
  12. CITRUCEL [Concomitant]
     Active Substance: METHYLCELLULOSE (4000 CPS)
     Indication: Constipation
     Dates: start: 2017
  13. TYLENOL [Concomitant]
     Active Substance: ACETAMINOPHEN
     Indication: Pain
     Dates: start: 202006
  14. COLACE [Concomitant]
     Active Substance: DOCUSATE SODIUM
     Indication: Faeces soft
     Dates: start: 202006
  15. SUPER B COMPLEX WITH ELECTROLYTES [Concomitant]
     Indication: Vitamin B complex deficiency
     Dosage: OVER THE COUNTER, VITAMIN
     Dates: start: 2017
  16. METOPROLOL [Concomitant]
     Active Substance: METOPROLOL
     Indication: Tachycardia
     Dates: start: 202001

REACTIONS (10)
  - Peripheral swelling [Unknown]
  - Deep vein thrombosis [Unknown]
  - Inferior vena caval occlusion [Unknown]
  - Pyrexia [Unknown]
  - Tachycardia [Unknown]
  - Hypotension [Unknown]
  - Jaundice [Unknown]
  - Blood creatinine increased [Unknown]
  - Dehydration [Unknown]
  - Embolism [Unknown]

NARRATIVE: CASE EVENT DATE: 20200101
